FAERS Safety Report 24174513 (Version 1)
Quarter: 2024Q3

REPORT INFORMATION
  Report Type: Spontaneous
  Country: CN (occurrence: CN)
  Receive Date: 20240805
  Receipt Date: 20240805
  Transmission Date: 20241017
  Serious: Yes (Hospitalization)
  Sender: AMGEN
  Company Number: CN-AMGEN-CHNSP2024151652

PATIENT
  Age: 89 Year
  Sex: Male

DRUGS (3)
  1. XGEVA [Suspect]
     Active Substance: DENOSUMAB
     Indication: Chemotherapy
     Dosage: 120 MILLIGRAM (1, 1)
     Route: 058
     Dates: start: 20240617, end: 20240617
  2. ABIRATERONE ACETATE [Suspect]
     Active Substance: ABIRATERONE ACETATE
     Indication: Chemotherapy
     Dosage: 0.75 GRAM
     Route: 048
     Dates: start: 20240608, end: 20240608
  3. LEUPROLIDE ACETATE [Suspect]
     Active Substance: ISOPROPYL ALCOHOL\LEUPROLIDE ACETATE
     Indication: Chemotherapy
     Dosage: 3.75 MILLIGRAM (1, 1)
     Route: 058
     Dates: start: 20240618, end: 20240618

REACTIONS (1)
  - Coagulopathy [Not Recovered/Not Resolved]

NARRATIVE: CASE EVENT DATE: 20240716
